FAERS Safety Report 15142570 (Version 1)
Quarter: 2018Q3

REPORT INFORMATION
  Report Type: Spontaneous
  Country: US (occurrence: US)
  Receive Date: 20180618
  Receipt Date: 20180618
  Transmission Date: 20181010
  Serious: Yes (Hospitalization)
  Sender: FDA-Public Use
  Company Number: None

PATIENT
  Age: 74 Year
  Sex: Male
  Weight: 86.85 kg

DRUGS (10)
  1. TIZANIDINE. [Concomitant]
     Active Substance: TIZANIDINE
  2. BIOTIN [Concomitant]
     Active Substance: BIOTIN
  3. VITAMIN D3 [Concomitant]
     Active Substance: CHOLECALCIFEROL
  4. ALLOPURINOL. [Concomitant]
     Active Substance: ALLOPURINOL
  5. CALCIUM CARBONATE. [Concomitant]
     Active Substance: CALCIUM CARBONATE
  6. ENZALUTAMIDE [Suspect]
     Active Substance: ENZALUTAMIDE
     Indication: PROSTATE CANCER METASTATIC
     Route: 048
     Dates: start: 20171229, end: 20180603
  7. LUPRON [Concomitant]
     Active Substance: LEUPROLIDE ACETATE
  8. KEPPRA [Concomitant]
     Active Substance: LEVETIRACETAM
  9. PROBIOTICS [Concomitant]
     Active Substance: PROBIOTICS NOS
  10. VITAMIN C [Concomitant]
     Active Substance: ASCORBIC ACID

REACTIONS (1)
  - Seizure [None]

NARRATIVE: CASE EVENT DATE: 20180605
